FAERS Safety Report 11519265 (Version 1)
Quarter: 2015Q3

REPORT INFORMATION
  Report Type: Spontaneous
  Country: GB (occurrence: GB)
  Receive Date: 20150917
  Receipt Date: 20150917
  Transmission Date: 20151125
  Serious: Yes (Disabling, Other)
  Sender: FDA-Public Use
  Company Number: GB-009507513-1509GBR006249

PATIENT
  Age: 30 Year
  Sex: Male
  Weight: 80 kg

DRUGS (3)
  1. PROPECIA [Suspect]
     Active Substance: FINASTERIDE
     Indication: ANDROGENETIC ALOPECIA
     Dosage: 1MG, QD
     Route: 048
     Dates: start: 20150608
  2. PROPECIA [Suspect]
     Active Substance: FINASTERIDE
     Dosage: 1MG, QD
     Route: 048
     Dates: start: 20150703
  3. LOSARTAN POTASSIUM. [Concomitant]
     Active Substance: LOSARTAN POTASSIUM
     Indication: HYPERTENSION
     Dosage: 50MG, QD
     Route: 048
     Dates: start: 2012

REACTIONS (3)
  - Abdominal discomfort [Not Recovered/Not Resolved]
  - Drug dependence [Not Recovered/Not Resolved]
  - Abdominal pain upper [Not Recovered/Not Resolved]

NARRATIVE: CASE EVENT DATE: 20150608
